FAERS Safety Report 9661977 (Version 2)
Quarter: 2013Q4

REPORT INFORMATION
  Report Type: Spontaneous
  Country: US (occurrence: US)
  Receive Date: 20131031
  Receipt Date: 20131031
  Transmission Date: 20140711
  Serious: No
  Sender: FDA-Public Use
  Company Number: US-PURDUE-USA-2010-0050134

PATIENT
  Sex: Male

DRUGS (1)
  1. OXYCONTIN (NDA 22-272) [Suspect]
     Indication: ROTATOR CUFF SYNDROME
     Dosage: 10 MG, QID
     Route: 048
     Dates: start: 20100909

REACTIONS (3)
  - Medication residue present [Unknown]
  - Inadequate analgesia [Unknown]
  - Fatigue [Unknown]
